FAERS Safety Report 8392362-8 (Version None)
Quarter: 2012Q2

REPORT INFORMATION
  Report Type: 
  Country: None (occurrence: None)
  Receive Date: 20120529
  Receipt Date: 20120516
  Transmission Date: 20120825
  Serious: Yes (Hospitalization)
  Sender: FDA-Public Use
  Company Number: US-ACTELION-A-US2012-64285

PATIENT

DRUGS (12)
  1. LASIX [Concomitant]
  2. EPOPROSTENOL SODIUM [Suspect]
     Indication: PULMONARY ARTERIAL HYPERTENSION
     Dosage: 40 NG/KG, PER MIN
     Route: 042
     Dates: start: 20110818
  3. ALDACTONE [Concomitant]
  4. ROCEPHIN [Suspect]
  5. AZITHROMYCIN [Suspect]
  6. ZETIA [Concomitant]
  7. ZOLOFT [Concomitant]
  8. COUMADIN [Concomitant]
     Dosage: UNK
     Dates: start: 20120116
  9. TENORMIN [Concomitant]
  10. SILDENAFIL [Concomitant]
  11. ALBUTEROL [Concomitant]
  12. XANAX [Concomitant]

REACTIONS (9)
  - PYREXIA [None]
  - THROMBOCYTOPENIA [None]
  - RASH [None]
  - DEHYDRATION [None]
  - OEDEMA PERIPHERAL [None]
  - DYSPNOEA [None]
  - DRUG HYPERSENSITIVITY [None]
  - TRACHEOBRONCHITIS [None]
  - HYPOXIA [None]
